FAERS Safety Report 19868084 (Version 3)
Quarter: 2022Q2

REPORT INFORMATION
  Report Type: Other
  Country: ZA (occurrence: None)
  Receive Date: 20210922
  Receipt Date: 20220608
  Transmission Date: 20220721
  Serious: No
  Sender: FDA-Public Use
  Company Number: ZA-ROCHE-2917004

PATIENT
  Sex: Female

DRUGS (1)
  1. OCREVUS [Suspect]
     Active Substance: OCRELIZUMAB
     Indication: Multiple sclerosis
     Dosage: HEREAFTER 600MG EVERY 6 MONTHS
     Route: 041
     Dates: start: 20210916, end: 20210916

REACTIONS (2)
  - SARS-CoV-2 test positive [Unknown]
  - Flushing [Not Recovered/Not Resolved]
